FAERS Safety Report 7562034-8 (Version None)
Quarter: 2011Q2

REPORT INFORMATION
  Report Type: 
  Country: None (occurrence: None)
  Receive Date: 20110622
  Receipt Date: 20080528
  Transmission Date: 20111010
  Serious: Yes (Hospitalization)
  Sender: FDA-Public Use
  Company Number: PHHY2008DE37529

PATIENT
  Sex: Male
  Weight: 78 kg

DRUGS (5)
  1. SANDOSTATIN LAR [Suspect]
     Indication: NEUROENDOCRINE TUMOUR
     Dosage: 20 MG, UNK
     Route: 030
     Dates: start: 20070525
  2. METOPROLOL TARTRATE [Concomitant]
     Dosage: 190 MG, HALF DAILY
  3. OMEPRAZOLE [Concomitant]
     Dosage: 20 MG, DAILY
  4. AMLODIPINE [Concomitant]
     Dosage: 5 MG, QD
  5. TAMSULOSIN HCL [Concomitant]
     Dosage: 0.4 MG, QD

REACTIONS (4)
  - MUSCULOSKELETAL PAIN [None]
  - CARDIOVASCULAR INSUFFICIENCY [None]
  - HEART RATE INCREASED [None]
  - DIARRHOEA [None]
